FAERS Safety Report 25243641 (Version 1)
Quarter: 2025Q2

REPORT INFORMATION
  Report Type: Spontaneous
  Country: CA (occurrence: CA)
  Receive Date: 20250428
  Receipt Date: 20250428
  Transmission Date: 20250716
  Serious: Yes (Other)
  Sender: SANDOZ
  Company Number: CA-SANDOZ-SDZ2025CA019541

PATIENT
  Age: 70 Year
  Sex: Female

DRUGS (10)
  1. JARDIANCE [Suspect]
     Active Substance: EMPAGLIFLOZIN
     Indication: Product used for unknown indication
     Route: 065
  2. KEVZARA [Suspect]
     Active Substance: SARILUMAB
     Indication: Rheumatoid arthritis
     Dosage: 200 MG, Q2W
     Route: 058
  3. KEVZARA [Suspect]
     Active Substance: SARILUMAB
     Dosage: 200 MG, Q2W
     Route: 058
  4. METFORMIN HYDROCHLORIDE [Suspect]
     Active Substance: METFORMIN HYDROCHLORIDE
     Indication: Product used for unknown indication
     Dosage: 500 MG, QD
     Route: 065
  5. AMITRIPTYLINE [Concomitant]
     Active Substance: AMITRIPTYLINE
     Indication: Product used for unknown indication
     Dosage: 50 MG, QD
     Route: 065
  6. CYMBALTA [Concomitant]
     Active Substance: DULOXETINE HYDROCHLORIDE
     Indication: Product used for unknown indication
     Route: 065
  7. OLMESARTAN MEDOXOMIL [Concomitant]
     Active Substance: OLMESARTAN MEDOXOMIL
     Indication: Product used for unknown indication
     Route: 065
  8. ROSUVASTATIN CALCIUM [Concomitant]
     Active Substance: ROSUVASTATIN CALCIUM
     Indication: Product used for unknown indication
     Route: 065
  9. SEMAGLUTIDE [Concomitant]
     Active Substance: SEMAGLUTIDE
     Indication: Product used for unknown indication
     Dosage: 0.05 MG, QW
     Route: 058
  10. PANTOPRAZOLE MAGNESIUM [Concomitant]
     Active Substance: PANTOPRAZOLE MAGNESIUM
     Indication: Product used for unknown indication
     Route: 065

REACTIONS (10)
  - Back disorder [Not Recovered/Not Resolved]
  - Biliary colic [Not Recovered/Not Resolved]
  - Cholecystitis infective [Not Recovered/Not Resolved]
  - Insomnia [Not Recovered/Not Resolved]
  - Kidney infection [Not Recovered/Not Resolved]
  - Nephrolithiasis [Not Recovered/Not Resolved]
  - Pain [Not Recovered/Not Resolved]
  - Renal pain [Not Recovered/Not Resolved]
  - Urinary tract infection [Not Recovered/Not Resolved]
  - Urinary tract pain [Not Recovered/Not Resolved]
